FAERS Safety Report 5316155-0 (Version None)
Quarter: 2007Q2

REPORT INFORMATION
  Report Type: 
  Country: None (occurrence: None)
  Receive Date: 20070503
  Receipt Date: 20070416
  Transmission Date: 20071010
  Serious: Yes (Hospitalization, Other)
  Sender: FDA-Public Use
  Company Number: US-SHR-US-2007-006932

PATIENT
  Age: 59 Year
  Sex: Female
  Weight: 61.678 kg

DRUGS (9)
  1. BETASERON [Suspect]
     Indication: RELAPSING-REMITTING MULTIPLE SCLEROSIS
     Dosage: 8 MIU, EVERY 2D
     Route: 058
     Dates: start: 20000403
  2. BETASERON [Suspect]
     Dosage: 8 MIU, EVERY 2D
     Route: 058
  3. ASPIRIN [Concomitant]
     Indication: ANTICOAGULANT THERAPY
     Dosage: 81 MG, UNK
     Route: 048
  4. CALCIUM AND ERGOCALCIFEROL [Concomitant]
     Dosage: 600 MG, UNK
     Route: 048
  5. SOY ISOFLAVONES [Concomitant]
     Dosage: 1 TAB(S), UNK
     Route: 048
  6. VITAMIN CAP [Concomitant]
     Dosage: 1 TAB(S), UNK
     Route: 048
  7. CYTOXAN [Suspect]
     Dates: start: 20070409
  8. ADRIAMYCIN PFS [Suspect]
     Dates: start: 20070409
  9. GO JUICE [Concomitant]

REACTIONS (4)
  - BREAST CANCER [None]
  - COGNITIVE DISORDER [None]
  - MULTIPLE SCLEROSIS [None]
  - NAUSEA [None]
